FAERS Safety Report 5675704-3 (Version None)
Quarter: 2008Q1

REPORT INFORMATION
  Report Type: 
  Country: None (occurrence: None)
  Receive Date: 20080321
  Receipt Date: 20080314
  Transmission Date: 20080703
  Serious: Yes (Other)
  Sender: FDA-Public Use
  Company Number: PHHY2008BR03244

PATIENT
  Age: 8 Year
  Sex: Male

DRUGS (1)
  1. TRILEPTAL [Suspect]
     Indication: ANXIOLYTIC THERAPY
     Dosage: 300 MG, TID
     Route: 048

REACTIONS (9)
  - ASTHENIA [None]
  - DIZZINESS [None]
  - GENERALISED ERYTHEMA [None]
  - HEADACHE [None]
  - LIP SWELLING [None]
  - OCULAR HYPERAEMIA [None]
  - PRURITUS GENERALISED [None]
  - PYREXIA [None]
  - VIRAL INFECTION [None]
